FAERS Safety Report 10248630 (Version 3)
Quarter: 2014Q3

REPORT INFORMATION
  Report Type: Spontaneous
  Country: JP (occurrence: JP)
  Receive Date: 20140620
  Receipt Date: 20140703
  Transmission Date: 20150326
  Serious: Yes (Death, Life-Threatening)
  Sender: FDA-Public Use
  Company Number: PHHY2014JP066970

PATIENT
  Sex: Female

DRUGS (1)
  1. EXELON PATCH [Suspect]
     Active Substance: RIVASTIGMINE
     Indication: DEMENTIA ALZHEIMER^S TYPE
     Dosage: 1.9 MG/24 HOURS (4.5 MG DAILY)
     Route: 062
     Dates: start: 20140523, end: 20140528

REACTIONS (4)
  - Pemphigoid [Fatal]
  - Renal failure [Unknown]
  - Pulmonary tuberculosis [Fatal]
  - Condition aggravated [Fatal]

NARRATIVE: CASE EVENT DATE: 20140527
